FAERS Safety Report 10890074 (Version 1)
Quarter: 2015Q1

REPORT INFORMATION
  Report Type: Spontaneous
  Country: US (occurrence: US)
  Receive Date: 20150305
  Receipt Date: 20150305
  Transmission Date: 20150721
  Serious: No
  Sender: FDA-Public Use
  Company Number: US-PFIZER INC-2015078645

PATIENT
  Age: 68 Year
  Sex: Female

DRUGS (2)
  1. CELECOXIB. [Suspect]
     Active Substance: CELECOXIB
     Indication: EXOSTOSIS
     Dosage: 200 MG, 1X/DAY
     Route: 048
     Dates: start: 20150202
  2. CELEBREX [Concomitant]
     Active Substance: CELECOXIB
     Indication: EXOSTOSIS
     Dosage: 1 DF, 1X/DAY (QD)
     Route: 048
     Dates: end: 20150201

REACTIONS (1)
  - Drug ineffective [Unknown]

NARRATIVE: CASE EVENT DATE: 201502
